FAERS Safety Report 9432682 (Version 1)
Quarter: 2013Q3

REPORT INFORMATION
  Report Type: Report from Study
  Country: TR (occurrence: TR)
  Receive Date: 20130731
  Receipt Date: 20130731
  Transmission Date: 20140515
  Serious: Yes (Death)
  Sender: FDA-Public Use
  Company Number: TR-ABBOTT-13X-161-1125942-00

PATIENT
  Sex: 0

DRUGS (5)
  1. VALPROIC ACID [Suspect]
     Indication: SUICIDE ATTEMPT
     Dosage: UNKNOWN; ONCE
     Route: 048
  2. PHENYTOIN [Suspect]
     Indication: SUICIDE ATTEMPT
     Dosage: UNKNOWN; ONCE
     Route: 048
  3. QUETIAPINE FUMARATE [Suspect]
     Indication: SUICIDE ATTEMPT
     Dosage: UNKNOWN; ONCE
     Route: 048
  4. PHENOBARBITAL [Suspect]
     Indication: SUICIDE ATTEMPT
     Dosage: UNKNOWN; ONCE
     Route: 048
  5. DIAZEPAM [Suspect]
     Indication: SUICIDE ATTEMPT
     Dosage: UNKNOWN; ONCE
     Route: 048

REACTIONS (1)
  - Overdose [Fatal]
